FAERS Safety Report 5042236-5 (Version None)
Quarter: 2006Q2

REPORT INFORMATION
  Report Type: 
  Country: None (occurrence: None)
  Receive Date: 20060601
  Receipt Date: 20060306
  Transmission Date: 20061013
  Serious: No
  Sender: FDA-Public Use
  Company Number: 2006PV009779

PATIENT
  Age: 55 Year
  Sex: Female
  Weight: 97.5234 kg

DRUGS (7)
  1. BYETTA [Suspect]
     Indication: DIABETES MELLITUS NON-INSULIN-DEPENDENT
     Dosage: SEE IMAGE
     Route: 058
     Dates: start: 20060114, end: 20060116
  2. BYETTA [Suspect]
     Indication: DIABETES MELLITUS NON-INSULIN-DEPENDENT
     Dosage: SEE IMAGE
     Route: 058
     Dates: start: 20060101, end: 20060213
  3. BYETTA [Suspect]
     Indication: DIABETES MELLITUS NON-INSULIN-DEPENDENT
     Dosage: SEE IMAGE
     Route: 058
     Dates: start: 20060214
  4. LEVAQUIN [Suspect]
     Indication: URINARY TRACT INFECTION
     Dates: start: 20060101, end: 20060301
  5. GLUCOPHAGE [Concomitant]
  6. ACTOS /USA/ [Concomitant]
  7. LANTUS [Concomitant]

REACTIONS (6)
  - ABDOMINAL DISTENSION [None]
  - ABDOMINAL PAIN UPPER [None]
  - BLOOD GLUCOSE INCREASED [None]
  - FEELING JITTERY [None]
  - NAUSEA [None]
  - VOMITING [None]
